FAERS Safety Report 7859977-4 (Version None)
Quarter: 2011Q4

REPORT INFORMATION
  Report Type: 
  Country: None (occurrence: None)
  Receive Date: 20111026
  Receipt Date: 20111026
  Transmission Date: 20120403
  Serious: Yes (Other)
  Sender: FDA-Public Use
  Company Number: None

PATIENT
  Age: 17 Year
  Sex: Female
  Weight: 59.8748 kg

DRUGS (1)
  1. BUPROPION HYDROCHLORIDE (WELLBUTRIN XL) [Suspect]
     Indication: MAJOR DEPRESSION
     Dosage: 150 MG THREE TIMES QAM PO STARTED 150MG QAM X1WK THEN 300MG QAM
     Route: 048
     Dates: start: 20110816, end: 20110925

REACTIONS (2)
  - GRAND MAL CONVULSION [None]
  - DEHYDRATION [None]
